FAERS Safety Report 25479151 (Version 1)
Quarter: 2025Q2

REPORT INFORMATION
  Report Type: Spontaneous
  Country: CN (occurrence: CN)
  Receive Date: 20250625
  Receipt Date: 20250625
  Transmission Date: 20250717
  Serious: Yes (Other)
  Sender: BAYER HEALTHCARE PHARMACEUTICALS INC.
  Company Number: CN-BAYER-2025A084313

PATIENT
  Age: 68 Year
  Sex: Female
  Weight: 45 kg

DRUGS (2)
  1. AVELOX [Suspect]
     Active Substance: MOXIFLOXACIN HYDROCHLORIDE
     Indication: Pneumonia mycoplasmal
     Dosage: 0.4 G, QD
     Route: 041
     Dates: start: 20250314, end: 20250316
  2. DYPHYLLINE [Concomitant]
     Active Substance: DYPHYLLINE
     Dosage: 0.25 G, QD
     Route: 041
     Dates: start: 20250314, end: 20250321

REACTIONS (3)
  - Altered state of consciousness [Recovered/Resolved]
  - Pruritus [Recovered/Resolved]
  - Dizziness [Recovered/Resolved]

NARRATIVE: CASE EVENT DATE: 20250315
